FAERS Safety Report 4989908-6 (Version None)
Quarter: 2006Q2

REPORT INFORMATION
  Report Type: 
  Country: None (occurrence: None)
  Receive Date: 20060503
  Receipt Date: 20060427
  Transmission Date: 20061013
  Serious: Yes (Hospitalization)
  Sender: FDA-Public Use
  Company Number: US-BRISTOL-MYERS SQUIBB COMPANY-13359427

PATIENT
  Age: 73 Year
  Sex: Male
  Weight: 120 kg

DRUGS (5)
  1. GLUCOPHAGE [Suspect]
     Indication: DIABETES MELLITUS NON-INSULIN-DEPENDENT
     Dates: end: 20060425
  2. FORTAMET [Concomitant]
  3. LASIX [Concomitant]
     Dosage: DOSAGE FORM = 20 MG OR 40 MG DAILY
  4. NITRO-BID [Concomitant]
  5. DUONEB [Concomitant]

REACTIONS (3)
  - BLOOD GLUCOSE INCREASED [None]
  - OEDEMA PERIPHERAL [None]
  - PYREXIA [None]
